FAERS Safety Report 10039756 (Version 1)
Quarter: 2014Q1

REPORT INFORMATION
  Report Type: Spontaneous
  Country: GB (occurrence: GB)
  Receive Date: 20140326
  Receipt Date: 20140326
  Transmission Date: 20141002
  Serious: Yes (Other)
  Sender: FDA-Public Use
  Company Number: GB-PFIZER INC-2014081713

PATIENT
  Age: 52 Year
  Sex: Female
  Weight: 75.3 kg

DRUGS (13)
  1. GABAPENTIN [Suspect]
     Dosage: 300 MG, UNK
     Dates: start: 20140306
  2. AMITRIPTYLINE HYDROCHLORIDE [Concomitant]
     Dosage: UNK
     Dates: start: 20131218
  3. AMOXICILLIN [Concomitant]
     Dosage: UNK
     Dates: start: 20131128, end: 20131212
  4. CARBOCISTEINE [Concomitant]
     Dosage: UNK
     Dates: start: 20131128, end: 20131226
  5. CEFALEXIN [Concomitant]
     Dosage: UNK
     Dates: start: 20140117, end: 20140210
  6. CHAMPIX [Concomitant]
     Dosage: UNK
     Dates: start: 20140306
  7. CO-CODAMOL [Concomitant]
     Dosage: UNK
     Dates: start: 20140108, end: 20140201
  8. LANSOPRAZOLE [Concomitant]
     Dosage: UNK
     Dates: start: 20131128, end: 20140205
  9. METOCLOPRAMIDE [Concomitant]
     Dosage: UNK
     Dates: start: 20131209, end: 20140228
  10. NEFOPAM [Concomitant]
     Dosage: UNK
     Dates: start: 20131128, end: 20140207
  11. PREDNISOLONE [Concomitant]
     Dosage: UNK
     Dates: start: 20140117, end: 20140214
  12. PROPRANOLOL [Concomitant]
     Dosage: UNK
     Dates: start: 20131128, end: 20140228
  13. TRAMADOL [Concomitant]
     Dosage: UNK
     Dates: start: 20131218

REACTIONS (5)
  - Hypersensitivity [Recovered/Resolved]
  - Swollen tongue [Recovered/Resolved]
  - Rash [Recovered/Resolved]
  - Oropharyngeal pain [Recovered/Resolved]
  - Swelling face [Recovered/Resolved]
